FAERS Safety Report 6294724-1 (Version None)
Quarter: 2009Q3

REPORT INFORMATION
  Report Type: 
  Country: None (occurrence: None)
  Receive Date: 20090803
  Receipt Date: 20090728
  Transmission Date: 20100115
  Serious: Yes (Other)
  Sender: FDA-Public Use
  Company Number: B0586744A

PATIENT
  Sex: Female

DRUGS (2)
  1. TYVERB [Suspect]
     Dosage: 1250MG PER DAY
     Route: 048
     Dates: start: 20080101
  2. XELODA [Concomitant]
     Dosage: 2000MG PER DAY
     Route: 048
     Dates: start: 20080101

REACTIONS (1)
  - HEPATITIS [None]
